FAERS Safety Report 14386811 (Version 1)
Quarter: 2018Q1

REPORT INFORMATION
  Report Type: Spontaneous
  Country: US (occurrence: US)
  Receive Date: 20180115
  Receipt Date: 20180115
  Transmission Date: 20180509
  Serious: Yes (Other)
  Sender: FDA-Public Use
  Company Number: US-SA-2017SA123261

PATIENT
  Age: 47 Year
  Sex: Female
  Weight: 86.18 kg

DRUGS (8)
  1. TAXOTERE [Suspect]
     Active Substance: DOCETAXEL
     Indication: BREAST CANCER FEMALE
     Route: 051
     Dates: start: 20140521, end: 20140521
  2. LOSARTAN. [Concomitant]
     Active Substance: LOSARTAN
     Route: 048
     Dates: start: 1994
  3. LOVASTATIN. [Concomitant]
     Active Substance: LOVASTATIN
     Route: 048
     Dates: start: 1994
  4. TAXOTERE [Suspect]
     Active Substance: DOCETAXEL
     Indication: BREAST CANCER FEMALE
     Route: 051
     Dates: start: 20140205, end: 20140205
  5. CARBOPLATIN. [Concomitant]
     Active Substance: CARBOPLATIN
     Route: 051
     Dates: start: 20140205, end: 20140205
  6. CARBOPLATIN. [Concomitant]
     Active Substance: CARBOPLATIN
     Route: 051
     Dates: start: 20140521, end: 20140521
  7. HERCEPTIN [Concomitant]
     Active Substance: TRASTUZUMAB
     Route: 065
  8. AMLODIPINE [Concomitant]
     Active Substance: AMLODIPINE BESYLATE
     Route: 065
     Dates: start: 1994, end: 2014

REACTIONS (2)
  - Psychological trauma [Unknown]
  - Alopecia [Not Recovered/Not Resolved]

NARRATIVE: CASE EVENT DATE: 20140301
